FAERS Safety Report 6417207-4 (Version None)
Quarter: 2009Q4

REPORT INFORMATION
  Report Type: 
  Country: None (occurrence: None)
  Receive Date: 20091028
  Receipt Date: 20091019
  Transmission Date: 20100525
  Serious: Yes (Other)
  Sender: FDA-Public Use
  Company Number: US-JNJFOC-20091006232

PATIENT
  Sex: Male

DRUGS (10)
  1. RISPERDAL [Suspect]
     Route: 048
  2. RISPERDAL [Suspect]
     Indication: DRUG USE FOR UNKNOWN INDICATION
     Route: 048
  3. CYMBALTA [Concomitant]
     Indication: DEPRESSION
     Route: 048
  4. LAMICTAL [Concomitant]
     Indication: DEPRESSION
     Route: 048
  5. LANTUS [Concomitant]
     Indication: DIABETES MELLITUS
     Route: 065
  6. NOVOLOG [Concomitant]
     Indication: DIABETES MELLITUS
     Route: 065
  7. MORPHINE [Concomitant]
     Indication: ARTHRITIS
     Route: 048
  8. NORCO [Concomitant]
     Indication: PAIN
     Route: 065
  9. XANAX [Concomitant]
     Indication: ANXIETY
     Route: 048
  10. PANCREASE MT [Concomitant]
     Indication: PANCREATIC DISORDER
     Route: 065

REACTIONS (3)
  - DEPRESSION [None]
  - DIABETES MELLITUS [None]
  - TREATMENT NONCOMPLIANCE [None]
